FAERS Safety Report 10419528 (Version 2)
Quarter: 2014Q3

REPORT INFORMATION
  Report Type: Spontaneous
  Country: FR (occurrence: None)
  Receive Date: 20140827
  Receipt Date: 20140922
  Transmission Date: 20150326
  Serious: Yes (Hospitalization)
  Sender: FDA-Public Use
  Company Number: 2014-FR-010524

PATIENT
  Age: 30 Year
  Sex: Female

DRUGS (1)
  1. XYREM [Suspect]
     Active Substance: SODIUM OXYBATE
     Indication: NARCOLEPSY
     Route: 048
     Dates: start: 20140404, end: 20140408

REACTIONS (6)
  - Abdominal pain [None]
  - Tremor [None]
  - Nausea [None]
  - Abdominal pain upper [None]
  - Decreased appetite [None]
  - Hair disorder [None]

NARRATIVE: CASE EVENT DATE: 2014
